FAERS Safety Report 13015684 (Version 2)
Quarter: 2016Q4

REPORT INFORMATION
  Report Type: Spontaneous
  Country: US (occurrence: US)
  Receive Date: 20161212
  Receipt Date: 20161221
  Transmission Date: 20170207
  Serious: No
  Sender: FDA-Public Use
  Company Number: US-009507513-1611USA011494

PATIENT
  Age: 61 Year
  Sex: Male

DRUGS (6)
  1. CLONAZEPAM. [Concomitant]
     Active Substance: CLONAZEPAM
     Route: 048
  2. METFORMIN [Concomitant]
     Active Substance: METFORMIN HYDROCHLORIDE
     Route: 048
  3. CARVEDIL [Concomitant]
     Active Substance: CARVEDILOL
     Route: 048
  4. CLONIDINE. [Concomitant]
     Active Substance: CLONIDINE
     Route: 048
  5. ZEPATIER [Suspect]
     Active Substance: ELBASVIR\GRAZOPREVIR
     Indication: HEPATITIS C
     Dosage: TAKE 1 TABLET (50-100MG) BY MOUTH EVERY DAY
     Route: 048
     Dates: start: 2016
  6. ZOLPIDEM [Concomitant]
     Active Substance: ZOLPIDEM\ZOLPIDEM TARTRATE
     Route: 048

REACTIONS (6)
  - Anxiety [Unknown]
  - Anal haemorrhage [Not Recovered/Not Resolved]
  - Insomnia [Unknown]
  - Constipation [Not Recovered/Not Resolved]
  - Headache [Unknown]
  - Drug ineffective [Unknown]

NARRATIVE: CASE EVENT DATE: 2016
